FAERS Safety Report 5701403-5 (Version None)
Quarter: 2008Q2

REPORT INFORMATION
  Report Type: 
  Country: None (occurrence: None)
  Receive Date: 20080407
  Receipt Date: 20080325
  Transmission Date: 20081010
  Serious: Yes (Hospitalization)
  Sender: FDA-Public Use
  Company Number: GXKR2008FR03037

PATIENT
  Age: 69 Year
  Sex: Female
  Weight: 45 kg

DRUGS (5)
  1. AMOXICILLIN TRIHYDRATE [Suspect]
     Indication: ANTIBIOTIC THERAPY
     Dosage: 500 MG, TWICE EVERY 12 HOURS, ORAL
     Route: 048
     Dates: start: 20080115, end: 20080120
  2. PNEUMOREL (FENSPIRIDE HYDROCHLORIDE) TABLET [Concomitant]
  3. DETURGYLONE (PREDNAZOLINE) POWDER FOR ORAL SUSPENSION [Concomitant]
  4. STAGID (METFORMIN EMBONATE) TABLET [Concomitant]
  5. ACETYLCYSTEINE [Concomitant]

REACTIONS (9)
  - ACUTE GENERALISED EXANTHEMATOUS PUSTULOSIS [None]
  - ANION GAP INCREASED [None]
  - BLOOD BICARBONATE DECREASED [None]
  - BLOOD CREATININE INCREASED [None]
  - C-REACTIVE PROTEIN INCREASED [None]
  - HYPERGLYCAEMIA [None]
  - KETOACIDOSIS [None]
  - PYREXIA [None]
  - RENAL FAILURE ACUTE [None]
